FAERS Safety Report 8322705-2 (Version None)
Quarter: 2012Q2

REPORT INFORMATION
  Report Type: 
  Country: None (occurrence: None)
  Receive Date: 20120426
  Receipt Date: 20120418
  Transmission Date: 20120825
  Serious: Yes (Hospitalization)
  Sender: FDA-Public Use
  Company Number: VAL_00745_2012

PATIENT
  Sex: Male

DRUGS (13)
  1. ANTI-COAGULANTS (UNKNOWN) [Concomitant]
  2. STATIN (UNKNOWN) [Concomitant]
  3. EZETIMIBE (UNKNOWN) [Concomitant]
  4. DIURETICS (UNKNOWN) [Concomitant]
  5. PLACEBO [Suspect]
     Indication: TYPE 2 DIABETES MELLITUS
     Dosage: (DF)
     Dates: start: 20110315
  6. ALPHA BLOCKERS [Concomitant]
  7. OTHER ANTI-PLATELET AGENTS (UNKNOWN) [Concomitant]
  8. SAXAGLIPTIN [Suspect]
     Indication: TYPE 2 DIABETES MELLITUS
     Dosage: (DF)
     Dates: start: 20110315
  9. HUMALOG [Suspect]
     Indication: TYPE 2 DIABETES MELLITUS
     Dosage: (DF)
  10. BUMEX [Suspect]
     Dosage: (DF)
  11. ANGIOTENSIN CONVERTING ENZYME INHIBITOR [Concomitant]
  12. BETA-BLOCKER [Concomitant]
  13. ASPIRIN [Concomitant]

REACTIONS (2)
  - HYPOTENSION [None]
  - PROCEDURAL COMPLICATION [None]
